FAERS Safety Report 6982413-7 (Version None)
Quarter: 2010Q3

REPORT INFORMATION
  Report Type: 
  Country: None (occurrence: None)
  Receive Date: 20100914
  Receipt Date: 20100129
  Transmission Date: 20110219
  Serious: No
  Sender: FDA-Public Use
  Company Number: US-PFIZER INC-2010003126

PATIENT
  Sex: Female
  Weight: 75 kg

DRUGS (13)
  1. LYRICA [Suspect]
     Indication: FIBROMYALGIA
     Dosage: 75 MG, 2X/DAY
     Dates: start: 20091113, end: 20091201
  2. LYRICA [Suspect]
     Dosage: 75 MG, 2X/DAY
     Dates: start: 20091207, end: 20091215
  3. METHOTREXATE [Concomitant]
     Indication: RHEUMATOID ARTHRITIS
     Dosage: UNK
     Dates: start: 20091113
  4. CLONIDINE HCL [Concomitant]
     Dosage: UNK
  5. SYNTHROID [Concomitant]
     Dosage: UNK
  6. INDERAL [Concomitant]
     Dosage: UNK
  7. ZOMIG [Concomitant]
     Dosage: UNK
  8. ADVAIR DISKUS 100/50 [Concomitant]
     Dosage: UNK
  9. VICODIN [Concomitant]
     Dosage: UNK
  10. ALBUTEROL [Concomitant]
     Dosage: UNK
  11. MOTRIN [Concomitant]
     Dosage: UNK
  12. VITAMIN D [Concomitant]
     Dosage: UNK
  13. MEDROL [Concomitant]
     Dosage: FREQUENCY: AS NEEDED,

REACTIONS (2)
  - HYPERSENSITIVITY [None]
  - VULVOVAGINAL CANDIDIASIS [None]
